FAERS Safety Report 15787113 (Version 1)
Quarter: 2018Q4

REPORT INFORMATION
  Report Type: Spontaneous
  Country: US (occurrence: US)
  Receive Date: 20181212
  Receipt Date: 20181212
  Transmission Date: 20190205
  Serious: Yes (Hospitalization)
  Sender: FDA-Public Use
  Company Number: None

PATIENT
  Age: 77 Year
  Sex: Male
  Weight: 90.3 kg

DRUGS (1)
  1. INTERFERON GAMMA-1B [Suspect]
     Active Substance: INTERFERON GAMMA-1B
     Dates: end: 20181201

REACTIONS (15)
  - Oedema peripheral [None]
  - Mycosis fungoides stage IV [None]
  - Lymphadenopathy [None]
  - Disease progression [None]
  - Chills [None]
  - Acute kidney injury [None]
  - Ankle fracture [None]
  - White blood cell count decreased [None]
  - Tumour haemorrhage [None]
  - Infection [None]
  - Asthenia [None]
  - Wound secretion [None]
  - Tumour rupture [None]
  - Fatigue [None]
  - Haemoglobin decreased [None]

NARRATIVE: CASE EVENT DATE: 20181201
